FAERS Safety Report 5505060-2 (Version None)
Quarter: 2007Q4

REPORT INFORMATION
  Report Type: 
  Country: None (occurrence: None)
  Receive Date: 20071031
  Receipt Date: 20071031
  Transmission Date: 20080405
  Serious: Yes (Other)
  Sender: FDA-Public Use
  Company Number: None

PATIENT
  Sex: Female

DRUGS (4)
  1. REVLIMID [Suspect]
     Indication: MULTIPLE MYELOMA
     Dosage: 25MG DAILY X21D/ 28D PO
     Route: 048
     Dates: start: 20070530, end: 20071016
  2. PROCRIT [Concomitant]
  3. PRILOSEC [Concomitant]
  4. DEXAMETHASONE [Concomitant]

REACTIONS (1)
  - NEUTROPENIA [None]
